FAERS Safety Report 4341644-5 (Version None)
Quarter: 2004Q2

REPORT INFORMATION
  Report Type: 
  Country: None (occurrence: None)
  Receive Date: 20040420
  Receipt Date: 20040405
  Transmission Date: 20050107
  Serious: Yes (Life-Threatening)
  Sender: FDA-Public Use
  Company Number: GB-ROCHE-363968

PATIENT
  Age: 40 Year
  Sex: Male

DRUGS (5)
  1. FUZEON [Suspect]
     Indication: HIV INFECTION
     Route: 065
     Dates: start: 20040209, end: 20040227
  2. DAPSONE [Concomitant]
     Dates: end: 20040229
  3. KALETRA [Concomitant]
     Dates: start: 20040209, end: 20040227
  4. LAMIVUDINE [Concomitant]
     Dates: start: 20040209, end: 20040227
  5. LANSOPRAZOLE [Concomitant]

REACTIONS (1)
  - TOXIC EPIDERMAL NECROLYSIS [None]
